FAERS Safety Report 12643348 (Version 1)
Quarter: 2016Q3

REPORT INFORMATION
  Report Type: Spontaneous
  Country: US (occurrence: US)
  Receive Date: 20160811
  Receipt Date: 20160811
  Transmission Date: 20161109
  Serious: No
  Sender: FDA-Public Use
  Company Number: US-ELI_LILLY_AND_COMPANY-US201608006251

PATIENT
  Sex: Male

DRUGS (1)
  1. CIALIS [Suspect]
     Active Substance: TADALAFIL
     Indication: ERECTILE DYSFUNCTION
     Dosage: 20 MG, PRN
     Route: 065
     Dates: start: 2013

REACTIONS (8)
  - Neck pain [Unknown]
  - Suspected counterfeit product [Unknown]
  - Headache [Unknown]
  - Back pain [Unknown]
  - Erectile dysfunction [Unknown]
  - Drug ineffective [Unknown]
  - Sinus disorder [Unknown]
  - Flushing [Unknown]
